FAERS Safety Report 17088461 (Version 2)
Quarter: 2019Q4

REPORT INFORMATION
  Report Type: Report from Study
  Country: ZA (occurrence: ZA)
  Receive Date: 20191128
  Receipt Date: 20191204
  Transmission Date: 20200122
  Serious: Yes (Other)
  Sender: FDA-Public Use
  Company Number: PHHY2018ZA194425

PATIENT
  Age: 35 Year
  Sex: Female

DRUGS (1)
  1. TUVIGIN [Suspect]
     Active Substance: FINGOLIMOD HYDROCHLORIDE
     Indication: RELAPSING-REMITTING MULTIPLE SCLEROSIS
     Dosage: 0.5 MG, QD
     Route: 048
     Dates: start: 20181219, end: 201908

REACTIONS (17)
  - Balance disorder [Recovering/Resolving]
  - Blood chloride increased [Unknown]
  - Vitamin B12 decreased [Unknown]
  - Visual impairment [Unknown]
  - Lymphocyte count decreased [Unknown]
  - Monocyte count decreased [Unknown]
  - Heart rate irregular [Unknown]
  - Red blood cell count decreased [Unknown]
  - Blood pressure fluctuation [Unknown]
  - Blood albumin decreased [Unknown]
  - Malaise [Recovering/Resolving]
  - Headache [Unknown]
  - Haemoglobin decreased [Unknown]
  - Expanded disability status scale score increased [Unknown]
  - Fatigue [Unknown]
  - Pain in extremity [Recovering/Resolving]
  - Blood bicarbonate decreased [Unknown]

NARRATIVE: CASE EVENT DATE: 20181219
